FAERS Safety Report 11076222 (Version 1)
Quarter: 2015Q2

REPORT INFORMATION
  Report Type: Spontaneous
  Country: US (occurrence: US)
  Receive Date: 20150429
  Receipt Date: 20150429
  Transmission Date: 20150821
  Serious: No
  Sender: FDA-Public Use
  Company Number: US-PFIZER INC-2015133072

PATIENT
  Age: 77 Year
  Sex: Female

DRUGS (3)
  1. IBUPROFEN. [Suspect]
     Active Substance: IBUPROFEN
     Dosage: UNK
  2. LACTOSE [Suspect]
     Active Substance: LACTOSE
     Dosage: UNK
  3. GLUTEN [Suspect]
     Active Substance: WHEAT GLUTEN
     Dosage: UNK

REACTIONS (1)
  - Drug hypersensitivity [Unknown]
